FAERS Safety Report 7812826-2 (Version None)
Quarter: 2011Q4

REPORT INFORMATION
  Report Type: 
  Country: None (occurrence: None)
  Receive Date: 20111013
  Receipt Date: 20111005
  Transmission Date: 20120403
  Serious: Yes (Other)
  Sender: FDA-Public Use
  Company Number: US-ASTRAZENECA-2010SE50830

PATIENT
  Age: 47 Year
  Sex: Male

DRUGS (2)
  1. NEXIUM [Suspect]
     Route: 048
  2. SEROQUEL [Suspect]
     Route: 048

REACTIONS (6)
  - GASTRIC DISORDER [None]
  - GASTRIC ULCER HAEMORRHAGE [None]
  - STERNAL FRACTURE [None]
  - CERVICAL VERTEBRAL FRACTURE [None]
  - SPINAL FRACTURE [None]
  - DRUG DOSE OMISSION [None]
